FAERS Safety Report 9153842 (Version 1)
Quarter: 2013Q1

REPORT INFORMATION
  Report Type: Spontaneous
  Country: US (occurrence: None)
  Receive Date: 20130308
  Receipt Date: 20130308
  Transmission Date: 20140127
  Serious: Yes (Hospitalization)
  Sender: FDA-Public Use
  Company Number: None

PATIENT
  Sex: Male
  Weight: 125 kg

DRUGS (14)
  1. NEUTROGENA SKINCLEARING OIL FREE MAKEUP - HONEY BEIGE 110 [Suspect]
     Dosage: QUARTER, 1XDAY, TOPICAL
     Route: 061
     Dates: start: 20130213
  2. ALLOPURINOL [Concomitant]
  3. ANDROGEL [Concomitant]
  4. VITB12 [Concomitant]
  5. VIT B6 [Concomitant]
  6. FISHOIL [Concomitant]
  7. GABAPENTIN [Concomitant]
  8. HYDROCODONE [Concomitant]
  9. LISINOPRIL [Concomitant]
  10. LORAZEPAM [Concomitant]
  11. MELOXICAM [Concomitant]
  12. MORPHINE [Concomitant]
  13. VENLAFAXINE [Concomitant]
  14. UNSPECIFIED MEDICATION [Concomitant]

REACTIONS (3)
  - Accidental exposure to product [None]
  - Stomatitis [None]
  - Rash erythematous [None]
